FAERS Safety Report 12877571 (Version 6)
Quarter: 2019Q2

REPORT INFORMATION
  Report Type: Spontaneous
  Country: BE (occurrence: BE)
  Receive Date: 20161024
  Receipt Date: 20190509
  Transmission Date: 20190711
  Serious: Yes (Death, Hospitalization, Disabling, Other)
  Sender: FDA-Public Use
  Company Number: BE-ABBVIE-16K-013-1759906-00

PATIENT
  Age: 53 Year
  Sex: Female
  Weight: 49.49 kg

DRUGS (19)
  1. HUMIRA [Suspect]
     Active Substance: ADALIMUMAB
     Indication: PSORIATIC ARTHROPATHY
     Route: 058
     Dates: start: 201607, end: 20160805
  2. OXYGEN. [Concomitant]
     Active Substance: OXYGEN
     Indication: PRODUCT USED FOR UNKNOWN INDICATION
  3. SINTROM [Suspect]
     Active Substance: ACENOCOUMAROL
     Indication: PRODUCT USED FOR UNKNOWN INDICATION
     Route: 065
  4. ZANIDIP [Concomitant]
     Active Substance: LERCANIDIPINE HYDROCHLORIDE
     Indication: PRODUCT USED FOR UNKNOWN INDICATION
  5. VITAMIN D NOS [Concomitant]
     Active Substance: VITAMIN D NOS
     Indication: PRODUCT USED FOR UNKNOWN INDICATION
  6. METHOTREXATE. [Concomitant]
     Active Substance: METHOTREXATE
     Indication: PRODUCT USED FOR UNKNOWN INDICATION
     Dosage: IN FUNCTION OF A DISEASE FLARE
  7. HUMIRA [Suspect]
     Active Substance: ADALIMUMAB
     Indication: PSORIASIS
     Route: 058
     Dates: start: 2008, end: 2010
  8. LEDERTREXATE [Suspect]
     Active Substance: METHOTREXATE
     Route: 065
  9. OTEZLA [Suspect]
     Active Substance: APREMILAST
     Indication: PRODUCT USED FOR UNKNOWN INDICATION
     Route: 065
     Dates: start: 201611
  10. LASIX [Concomitant]
     Active Substance: FUROSEMIDE
     Indication: PRODUCT USED FOR UNKNOWN INDICATION
  11. LEDERTREXATE [Suspect]
     Active Substance: METHOTREXATE
     Indication: PSORIASIS
     Route: 065
  12. PANTOMED [Concomitant]
     Indication: PRODUCT USED FOR UNKNOWN INDICATION
  13. DAFALGAN [Concomitant]
     Active Substance: ACETAMINOPHEN
     Indication: PRODUCT USED FOR UNKNOWN INDICATION
  14. BEFACT [Concomitant]
     Indication: PRODUCT USED FOR UNKNOWN INDICATION
  15. HUMIRA [Suspect]
     Active Substance: ADALIMUMAB
     Indication: RHEUMATOID ARTHRITIS
     Route: 058
     Dates: start: 201704, end: 201708
  16. GLUCOPHAGE [Concomitant]
     Active Substance: METFORMIN HYDROCHLORIDE
     Indication: PRODUCT USED FOR UNKNOWN INDICATION
  17. STELARA [Suspect]
     Active Substance: USTEKINUMAB
     Indication: PRODUCT USED FOR UNKNOWN INDICATION
     Route: 065
     Dates: start: 2010
  18. LYRICA [Concomitant]
     Active Substance: PREGABALIN
     Indication: PRODUCT USED FOR UNKNOWN INDICATION
  19. TRADONAL [Concomitant]
     Active Substance: TRAMADOL HYDROCHLORIDE
     Indication: PRODUCT USED FOR UNKNOWN INDICATION
     Dosage: PROLONGED-RELEASE TABLET

REACTIONS (38)
  - Traumatic haematoma [Recovered/Resolved]
  - Blood glucose increased [Unknown]
  - Post procedural sepsis [Fatal]
  - Bronchitis [Unknown]
  - Superinfection [Unknown]
  - Pyelonephritis [Unknown]
  - Gait disturbance [Unknown]
  - Staphylococcal sepsis [Recovered/Resolved]
  - Sepsis [Not Recovered/Not Resolved]
  - Chronic obstructive pulmonary disease [Recovered/Resolved]
  - Deep vein thrombosis [Recovered/Resolved]
  - Atrial fibrillation [Unknown]
  - Dermatitis exfoliative generalised [Unknown]
  - Wound sepsis [Unknown]
  - Urinary tract infection [Unknown]
  - Loss of personal independence in daily activities [Recovered/Resolved]
  - Wound [Unknown]
  - Decubitus ulcer [Unknown]
  - Pulmonary embolism [Recovered/Resolved]
  - Fibrin D dimer increased [Unknown]
  - Blood fibrinogen increased [Unknown]
  - Diarrhoea [Unknown]
  - Wound secretion [Unknown]
  - Chronic obstructive pulmonary disease [Unknown]
  - Pustular psoriasis [Recovering/Resolving]
  - Drug ineffective [Unknown]
  - Bacterial infection [Fatal]
  - Haemorrhage [Unknown]
  - Fall [Recovered/Resolved]
  - Fall [Recovered/Resolved]
  - Respiratory tract infection [Unknown]
  - Wound infection [Unknown]
  - Condition aggravated [Unknown]
  - Dehydration [Unknown]
  - Procedural shock [Fatal]
  - Diarrhoea [Unknown]
  - Gamma-glutamyltransferase increased [Unknown]
  - Psoriasis [Unknown]

NARRATIVE: CASE EVENT DATE: 2016
